FAERS Safety Report 13029165 (Version 1)
Quarter: 2016Q4

REPORT INFORMATION
  Report Type: Spontaneous
  Country: FR (occurrence: FR)
  Receive Date: 20161215
  Receipt Date: 20161215
  Transmission Date: 20170207
  Serious: Yes (Hospitalization, Other)
  Sender: FDA-Public Use
  Company Number: FR-BAXTER-2016BAX061960

PATIENT
  Age: 57 Year
  Sex: Female

DRUGS (10)
  1. VINCRISTINE [Suspect]
     Active Substance: VINCRISTINE
     Indication: DIFFUSE LARGE B-CELL LYMPHOMA RECURRENT
     Dosage: 8 COURSES OF R-CHOP PROTOCOL
     Route: 065
     Dates: start: 201510, end: 20160208
  2. MABTHERA [Suspect]
     Active Substance: RITUXIMAB
     Indication: DIFFUSE LARGE B-CELL LYMPHOMA RECURRENT
     Dosage: 8 COURSES OF R-CHOP PROTOCOL
     Route: 042
     Dates: start: 201510, end: 20160208
  3. DOXORUBICIN TEVA [Suspect]
     Active Substance: DOXORUBICIN
     Indication: DIFFUSE LARGE B-CELL LYMPHOMA RECURRENT
     Dosage: 8 COURSES OF R-CHOP PROTOCOL
     Route: 042
     Dates: start: 201510, end: 20160208
  4. METHOTREXATE (METHOTREXATE SODIUM) [Suspect]
     Active Substance: METHOTREXATE SODIUM
     Route: 042
     Dates: start: 20160406, end: 20160406
  5. INNOHEP [Suspect]
     Active Substance: TINZAPARIN SODIUM
     Indication: PULMONARY EMBOLISM
     Dosage: 1 DOSAGE FORM ONCE DAILY
     Route: 058
     Dates: start: 20160427, end: 20160805
  6. PREDNISONE. [Suspect]
     Active Substance: PREDNISONE
     Indication: DIFFUSE LARGE B-CELL LYMPHOMA RECURRENT
     Dosage: 8 COURSES R-CHOP PROTOCOL
     Route: 048
     Dates: start: 201510, end: 20160208
  7. METHOTREXATE (METHOTREXATE SODIUM) [Suspect]
     Active Substance: METHOTREXATE SODIUM
     Indication: DIFFUSE LARGE B-CELL LYMPHOMA RECURRENT
     Route: 042
     Dates: start: 20160324, end: 20160324
  8. UROMITEXAN 1 G/10 ML, SOLUTION INJECTABLE POUR PERFUSION EN FLACON [Suspect]
     Active Substance: MESNA
     Indication: DIFFUSE LARGE B-CELL LYMPHOMA RECURRENT
     Dosage: 8 COURSES
     Route: 042
     Dates: start: 201510, end: 20160208
  9. ENDOXAN 1000 MG, POUDRE POUR SOLUTION INJECTABLE [Suspect]
     Active Substance: CYCLOPHOSPHAMIDE
     Indication: DIFFUSE LARGE B-CELL LYMPHOMA RECURRENT
     Dosage: 8 COURSES R-CHOP PROTOCOL
     Route: 042
     Dates: start: 201510, end: 20160208
  10. ETOPOPHOS [Suspect]
     Active Substance: ETOPOSIDE PHOSPHATE
     Indication: DIFFUSE LARGE B-CELL LYMPHOMA RECURRENT
     Dosage: LYOPHILISATE FOR PARENTERAL USE, 8 COURSES
     Route: 042
     Dates: start: 201510, end: 20160208

REACTIONS (3)
  - Cystitis [Not Recovered/Not Resolved]
  - Pulmonary embolism [Unknown]
  - Haematuria [Recovered/Resolved]

NARRATIVE: CASE EVENT DATE: 201604
